FAERS Safety Report 12628026 (Version 1)
Quarter: 2016Q3

REPORT INFORMATION
  Report Type: Spontaneous
  Country: MT (occurrence: MT)
  Receive Date: 20160807
  Receipt Date: 20160807
  Transmission Date: 20161109
  Serious: Yes (Hospitalization)
  Sender: FDA-Public Use
  Company Number: MT-BEH-2016061560

PATIENT
  Age: 28 Year
  Sex: Female

DRUGS (15)
  1. ASPIRIN. [Concomitant]
     Active Substance: ASPIRIN
     Route: 065
  2. MISOPROSTOL. [Concomitant]
     Active Substance: MISOPROSTOL
     Indication: ABORTION SPONTANEOUS
     Dosage: 800 ?G, TOT
     Route: 065
     Dates: start: 20160403
  3. CODEINE PHOSPHATE [Concomitant]
     Active Substance: CODEINE PHOSPHATE
     Dosage: 30 MG, TOT
     Route: 048
     Dates: start: 20160403
  4. FENTANYL. [Concomitant]
     Active Substance: FENTANYL
     Indication: SURGERY
     Dosage: 50 ?G, TOT
     Route: 065
     Dates: start: 20160404
  5. DEXAMETHASONE. [Concomitant]
     Active Substance: DEXAMETHASONE
     Indication: SURGERY
     Dosage: 8 MG, TOT
     Route: 065
  6. PROPOFOL. [Concomitant]
     Active Substance: PROPOFOL
     Indication: SURGERY
     Dosage: 150 MG, TOT
     Route: 065
     Dates: start: 20160404
  7. RHOPHYLAC [Suspect]
     Active Substance: HUMAN RHO(D) IMMUNE GLOBULIN
     Indication: RHESUS INCOMPATIBILITY
     Dosage: 250 MG, UNK
     Route: 030
     Dates: start: 20160408
  8. METFORMIN FC [Concomitant]
     Route: 065
  9. PARACETAMOL [Concomitant]
     Active Substance: ACETAMINOPHEN
     Indication: SURGERY
     Dosage: 1 G, TOT
     Route: 042
     Dates: start: 20160404
  10. RANITIDINE 25MG [Concomitant]
     Route: 065
  11. SUXAMETHONIUM [Concomitant]
     Active Substance: SUCCINYLCHOLINE
     Indication: SURGERY
     Dosage: 50 MG, TOT
     Route: 065
     Dates: start: 20160404
  12. HYDROCORTISONE. [Concomitant]
     Active Substance: HYDROCORTISONE
     Indication: SURGERY
     Dosage: 100 MG, TOT
     Route: 065
     Dates: start: 20160404
  13. FOLIC ACID. [Concomitant]
     Active Substance: FOLIC ACID
     Route: 065
  14. VOLTAREN [Concomitant]
     Active Substance: DICLOFENAC SODIUM
     Indication: ABORTION SPONTANEOUS
     Dosage: 100 MG, UNK
     Route: 065
     Dates: start: 20160403
  15. AUGMENTIN [Concomitant]
     Active Substance: AMOXICILLIN\CLAVULANATE POTASSIUM
     Indication: SURGERY
     Dosage: 1.2 G, TOT
     Route: 042
     Dates: start: 20160404

REACTIONS (9)
  - Nausea [Recovered/Resolved]
  - Rash erythematous [Recovered/Resolved]
  - Hypersensitivity [Recovering/Resolving]
  - Vomiting [Recovered/Resolved]
  - Rash pruritic [Recovering/Resolving]
  - Diarrhoea [Recovered/Resolved]
  - Rash generalised [Recovering/Resolving]
  - Rash generalised [Recovered/Resolved]
  - Rash erythematous [Recovering/Resolving]

NARRATIVE: CASE EVENT DATE: 20160408
